FAERS Safety Report 14533116 (Version 1)
Quarter: 2018Q1

REPORT INFORMATION
  Report Type: Spontaneous
  Country: US (occurrence: US)
  Receive Date: 20180215
  Receipt Date: 20180215
  Transmission Date: 20180509
  Serious: No
  Sender: FDA-Public Use
  Company Number: US-CELGENEUS-USA-20180204676

PATIENT
  Age: 47 Year
  Sex: Male
  Weight: 95 kg

DRUGS (3)
  1. APREMILAST [Suspect]
     Active Substance: APREMILAST
     Indication: HAND DERMATITIS
  2. APREMILAST [Suspect]
     Active Substance: APREMILAST
     Indication: ECZEMA
  3. APREMILAST [Suspect]
     Active Substance: APREMILAST
     Indication: PSORIASIS
     Dosage: 60 MILLIGRAM
     Route: 048
     Dates: start: 20180201

REACTIONS (1)
  - Nausea [Not Recovered/Not Resolved]

NARRATIVE: CASE EVENT DATE: 20180203
